FAERS Safety Report 11640523 (Version 1)
Quarter: 2015Q4

REPORT INFORMATION
  Report Type: Spontaneous
  Country: US (occurrence: None)
  Receive Date: 20151016
  Receipt Date: 20151016
  Transmission Date: 20160304
  Serious: Yes (Disabling)
  Sender: FDA-Public Use
  Company Number: None

PATIENT
  Age: 44 Year
  Sex: Female
  Weight: 104.78 kg

DRUGS (2)
  1. ARBONNE SUPPLEMENTS [Concomitant]
  2. CIPROFLOXACIN 250 BAYER [Suspect]
     Active Substance: CIPROFLOXACIN
     Indication: URINARY TRACT INFECTION
     Dosage: 250    TWICE DAILY  TAKEN BY MOUH
     Route: 048
     Dates: start: 20151005, end: 20151010

REACTIONS (1)
  - Amnesia [None]

NARRATIVE: CASE EVENT DATE: 20151012
